FAERS Safety Report 12398833 (Version 1)
Quarter: 2016Q2

REPORT INFORMATION
  Report Type: Spontaneous
  Country: GB (occurrence: GB)
  Receive Date: 20160524
  Receipt Date: 20160524
  Transmission Date: 20160815
  Serious: Yes (Other)
  Sender: FDA-Public Use
  Company Number: GB-ELI_LILLY_AND_COMPANY-GB201605006698

PATIENT
  Age: 23 Year
  Sex: Female
  Weight: 55 kg

DRUGS (2)
  1. FEMODETTE [Concomitant]
     Indication: PRODUCT USED FOR UNKNOWN INDICATION
     Dosage: UNK UNK, UNKNOWN
     Route: 065
  2. OLANZAPINE. [Suspect]
     Active Substance: OLANZAPINE
     Indication: PSYCHOTIC DISORDER
     Dosage: VARIED 2.5 - 10MG
     Route: 048
     Dates: start: 20140914, end: 20150414

REACTIONS (5)
  - Lethargy [Recovered/Resolved]
  - Increased appetite [Recovered/Resolved]
  - Exercise tolerance decreased [Unknown]
  - Dysarthria [Recovered/Resolved]
  - Abnormal weight gain [Recovered/Resolved]

NARRATIVE: CASE EVENT DATE: 201409
